FAERS Safety Report 23031599 (Version 1)
Quarter: 2023Q4

REPORT INFORMATION
  Report Type: Spontaneous
  Country: US (occurrence: US)
  Receive Date: 20231005
  Receipt Date: 20231005
  Transmission Date: 20240110
  Serious: Yes (Other)
  Sender: FDA-Public Use
  Company Number: US-AMGEN-USASP2023172427

PATIENT

DRUGS (1)
  1. AMJEVITA [Suspect]
     Active Substance: ADALIMUMAB-ATTO
     Indication: Product used for unknown indication
     Dosage: 40 MILLIGRAM, Q2WK
     Route: 065

REACTIONS (7)
  - Presyncope [Recovered/Resolved]
  - Limb discomfort [Recovered/Resolved]
  - Hypoaesthesia [Recovered/Resolved]
  - Therapy cessation [Unknown]
  - Fatigue [Recovered/Resolved]
  - Palpitations [Recovered/Resolved]
  - Inflammation [Not Recovered/Not Resolved]
